FAERS Safety Report 16332709 (Version 1)
Quarter: 2019Q2

REPORT INFORMATION
  Report Type: Spontaneous
  Country: US (occurrence: US)
  Receive Date: 20190520
  Receipt Date: 20190520
  Transmission Date: 20190711
  Serious: No
  Sender: FDA-Public Use
  Company Number: US-TARO-2019TAR00153

PATIENT
  Age: 71 Year
  Sex: Female
  Weight: 56.69 kg

DRUGS (12)
  1. CARBAMAZEPINE EXTENDED RELEASE TABLETS USP 200MG [Suspect]
     Active Substance: CARBAMAZEPINE
     Indication: TRIGEMINAL NEURALGIA
     Dosage: 600 MG, 1X/DAY
     Route: 048
     Dates: end: 201810
  2. LISINOPRIL. [Concomitant]
     Active Substance: LISINOPRIL
  3. SULFAMETHOXAZOLE TRIMETHOPRIM [Concomitant]
     Active Substance: SULFAMETHOXAZOLE\TRIMETHOPRIM
     Dosage: 1 DOSAGE UNITS, 1X/DAY
  4. PROLIA [Concomitant]
     Active Substance: DENOSUMAB
     Dosage: 1 DOSAGE UNITS, 2X/YEAR
  5. CARBAMAZEPINE EXTENDED RELEASE TABLETS USP 200MG [Suspect]
     Active Substance: CARBAMAZEPINE
     Dosage: 600 MG, 2X/DAY
     Route: 048
     Dates: start: 201810
  6. TRAZODONE [Concomitant]
     Active Substance: TRAZODONE HYDROCHLORIDE
     Dosage: 150 MG, 1X/DAY AT BEDTIME
  7. UNSPECIFIED STEROID INJECTION [Concomitant]
     Active Substance: UNSPECIFIED INGREDIENT
  8. CLONIDINE. [Concomitant]
     Active Substance: CLONIDINE
  9. CRITICAL [Concomitant]
  10. MULTIVITAMIN [Concomitant]
     Active Substance: VITAMINS
  11. LEXAPRO [Concomitant]
     Active Substance: ESCITALOPRAM OXALATE
  12. DICYCLOMINE [Concomitant]
     Active Substance: DICYCLOMINE HYDROCHLORIDE

REACTIONS (2)
  - Pain [Not Recovered/Not Resolved]
  - Drug ineffective [Not Recovered/Not Resolved]

NARRATIVE: CASE EVENT DATE: 201810
